FAERS Safety Report 8043251-X (Version None)
Quarter: 2012Q1

REPORT INFORMATION
  Report Type: 
  Country: None (occurrence: None)
  Receive Date: 20120112
  Receipt Date: 20120104
  Transmission Date: 20120608
  Serious: Yes (Hospitalization, Other)
  Sender: FDA-Public Use
  Company Number: US-ELI_LILLY_AND_COMPANY-US201201002516

PATIENT

DRUGS (2)
  1. DROTRECOGIN ALFA (ACTIVATED) [Suspect]
     Indication: SEPTIC SHOCK
  2. ANTIBIOTICS [Concomitant]

REACTIONS (1)
  - ANAEMIA [None]
